FAERS Safety Report 12659151 (Version 1)
Quarter: 2016Q3

REPORT INFORMATION
  Report Type: Spontaneous
  Country: FR (occurrence: FR)
  Receive Date: 20160817
  Receipt Date: 20160817
  Transmission Date: 20161109
  Serious: Yes (Life-Threatening)
  Sender: FDA-Public Use
  Company Number: FR-PFIZER INC-2016382584

PATIENT
  Age: 13 Year
  Sex: Male

DRUGS (17)
  1. KETAMINE HCL [Suspect]
     Active Substance: KETAMINE HYDROCHLORIDE
     Indication: INDUCTION OF ANAESTHESIA
  2. SOLU-MEDROL [Suspect]
     Active Substance: METHYLPREDNISOLONE SODIUM SUCCINATE
     Dosage: 1 MG/KG, DAILY
     Dates: start: 20160527
  3. SOLU-MEDROL [Suspect]
     Active Substance: METHYLPREDNISOLONE SODIUM SUCCINATE
     Dosage: 35 MG, 2X/DAY
  4. CORTANCYL [Suspect]
     Active Substance: PREDNISONE
     Dosage: 2 MG, 1X/DAY
     Route: 048
     Dates: start: 20160526, end: 20160526
  5. CEFOTAXIME [Suspect]
     Active Substance: CEFOTAXIME SODIUM
     Dosage: 33 MG, DAILY
     Route: 042
     Dates: start: 20160527
  6. CELOCURINE [Suspect]
     Active Substance: SUCCINYLCHOLINE CHLORIDE
     Indication: INDUCTION OF ANAESTHESIA
     Dosage: UNK
     Route: 042
     Dates: start: 20160527, end: 20160527
  7. NIMBEX [Suspect]
     Active Substance: CISATRACURIUM BESYLATE
     Indication: SEDATION
     Dosage: UNK
     Route: 042
     Dates: start: 20160527, end: 20160531
  8. KETAMINE HCL [Suspect]
     Active Substance: KETAMINE HYDROCHLORIDE
     Indication: SEDATION
     Dosage: UNK
     Route: 042
     Dates: start: 20160527, end: 20160531
  9. SALBUTAMOL [Suspect]
     Active Substance: ALBUTEROL
     Dosage: 1.8 UG/KG/MIN
     Route: 042
     Dates: start: 20160527, end: 20160530
  10. CIFLOX /00697201/ [Suspect]
     Active Substance: CIPROFLOXACIN
     Dosage: UNK
     Route: 042
     Dates: start: 20160531
  11. VENTOLINE /00139501/ [Concomitant]
     Active Substance: ALBUTEROL
  12. LOXEN /00639802/ [Suspect]
     Active Substance: NICARDIPINE
     Dosage: UNK
     Route: 048
     Dates: start: 20160531
  13. TAVANIC [Suspect]
     Active Substance: LEVOFLOXACIN
     Dosage: UNK
     Route: 042
     Dates: start: 20160527
  14. LASILIX /00032601/ [Suspect]
     Active Substance: FUROSEMIDE
     Dosage: 40 MG, 1X/DAY
     Route: 048
     Dates: start: 20160526, end: 20160526
  15. MAGNESIUM SULFATE. [Suspect]
     Active Substance: MAGNESIUM SULFATE
     Dosage: 50 MG, 1X/DAY
     Route: 042
     Dates: start: 20160527
  16. SALBUTAMOL [Suspect]
     Active Substance: ALBUTEROL
     Dosage: 120 MG, DAILY ((5 MG 1X1/HOUR))
     Route: 055
     Dates: start: 20160527
  17. ATROVENT [Suspect]
     Active Substance: IPRATROPIUM BROMIDE
     Dosage: 2 MG, DAILY (0.25 MG 1X3/HOURS)
     Route: 055
     Dates: start: 20160527

REACTIONS (3)
  - Cerebrovascular disorder [Recovered/Resolved with Sequelae]
  - Altered state of consciousness [Recovered/Resolved]
  - Cerebrovascular accident [Recovered/Resolved with Sequelae]

NARRATIVE: CASE EVENT DATE: 20160601
